FAERS Safety Report 8807955 (Version 1)
Quarter: 2012Q4

REPORT INFORMATION
  Report Type: 
  Country: US (occurrence: US)
  Receive Date: 20120925
  Receipt Date: 20120925
  Transmission Date: 20130627
  Serious: Yes (Hospitalization, Other)
  Sender: FDA-Public Use
  Company Number: US-ROCHE-1127629

PATIENT
  Sex: Female

DRUGS (12)
  1. AVASTIN [Suspect]
     Indication: BREAST CANCER FEMALE
     Route: 065
  2. NAVELBINE [Concomitant]
     Route: 065
     Dates: start: 20060128
  3. TAXOTERE [Concomitant]
  4. DOXIL (ISRAEL) [Concomitant]
  5. GEMZAR [Concomitant]
  6. TAMOXIFENE [Concomitant]
  7. ARIMIDEX [Concomitant]
  8. MEGACE [Concomitant]
  9. FEMARA [Concomitant]
  10. FASLODEX [Concomitant]
  11. AROMASIN [Concomitant]
  12. ZOMETA [Concomitant]

REACTIONS (4)
  - Metastases to bone [Unknown]
  - Disease progression [Unknown]
  - Malaise [Unknown]
  - Neuropathy peripheral [Unknown]
